FAERS Safety Report 6341010-7 (Version None)
Quarter: 2009Q3

REPORT INFORMATION
  Report Type: 
  Country: None (occurrence: None)
  Receive Date: 20090902
  Receipt Date: 20090902
  Transmission Date: 20100115
  Serious: No
  Sender: FDA-Public Use
  Company Number: None

PATIENT
  Age: 59 Year
  Sex: Female

DRUGS (1)
  1. THYROID TAB [Suspect]
     Indication: HYPOTHYROIDISM
     Dosage: 5 TABS ONCE DAILY (DURATION: YEARS; 6 WEEKS ON CURRENT LOT OF THYROID)

REACTIONS (1)
  - BLOOD THYROID STIMULATING HORMONE DECREASED [None]
